FAERS Safety Report 23150768 (Version 1)
Quarter: 2023Q4

REPORT INFORMATION
  Report Type: Spontaneous
  Country: FR (occurrence: FR)
  Receive Date: 20231106
  Receipt Date: 20231106
  Transmission Date: 20240110
  Serious: Yes (Other)
  Sender: FDA-Public Use
  Company Number: None

PATIENT
  Age: 59 Year
  Sex: Female

DRUGS (9)
  1. RABEPRAZOLE SODIUM [Suspect]
     Active Substance: RABEPRAZOLE SODIUM
     Indication: Gastrooesophageal reflux disease
     Dosage: UNIT DOSE : 20 MG, FREQUENCY TIME : 1 DAY, THERAPY START DATE : NASK
     Dates: end: 20230916
  2. MONTELUKAST SODIUM [Suspect]
     Active Substance: MONTELUKAST SODIUM
     Indication: COVID-19
     Dosage: UNIT DOSE : 1 DF, FREQUENCY TIME : 1 DAY, THERAPY START DATE: NASK
     Dates: end: 20230916
  3. VITAMIN B12 [Suspect]
     Active Substance: CYANOCOBALAMIN
     Indication: Hypovitaminosis
     Dosage: VITAMIN B12 DELAGRANGE 1000 MCG/2 ML, SOLUTION FOR INJECTION (IM) AND DRINKABLE, UNIT DOSE : 1 DF ,
     Route: 030
     Dates: start: 20230916, end: 20230916
  4. THIAMINE HYDROCHLORIDE [Suspect]
     Active Substance: THIAMINE HYDROCHLORIDE
     Indication: Vitamin supplementation
     Dosage: STRENGTH : 250 MG, UNIT DOSE : 250 MG, FREQUENCY TIME : 1 DAY, THERAPY START DATE: NASK
     Dates: end: 20230916
  5. FOLIC ACID [Suspect]
     Active Substance: FOLIC ACID
     Indication: Vitamin supplementation
     Dosage: STRENGTH : 5 MG, UNIT DOSE : 10 MG, FREQUENCY TIME : 1 DAY, THERAPY START DATE : NASK
     Dates: end: 20230916
  6. VITAMINS [Suspect]
     Active Substance: VITAMINS
     Indication: Nutritional supplementation
     Dosage: UNIT DOSE : 2 DF , FREQUENCY TIME : 1 DAY, THERAPY START DATE : NASK
     Dates: end: 20230916
  7. CALCIUM CARBONATE\CHOLECALCIFEROL [Suspect]
     Active Substance: CALCIUM CARBONATE\CHOLECALCIFEROL
     Indication: Vitamin supplementation
     Dosage: OROCAL VITAMIN D3 500 MG/400 IU, UNIT DOSE : 2 DF, FREQUENCY TIME : 1 DAY, THERAPY START DATE : NASK
     Dates: end: 20230916
  8. BISOPROLOL FUMARATE [Concomitant]
     Active Substance: BISOPROLOL FUMARATE
     Indication: Product used for unknown indication
  9. CHOLECALCIFEROL [Concomitant]
     Active Substance: CHOLECALCIFEROL
     Indication: Product used for unknown indication

REACTIONS (1)
  - Rash pruritic [Recovered/Resolved]

NARRATIVE: CASE EVENT DATE: 20230916
